FAERS Safety Report 9089653 (Version 1)
Quarter: 2013Q1

REPORT INFORMATION
  Report Type: Report from Study
  Country: US (occurrence: US)
  Receive Date: 20130130
  Receipt Date: 20130130
  Transmission Date: 20140127
  Serious: No
  Sender: FDA-Public Use
  Company Number: US-ABBOTT-12P-163-0953922-00

PATIENT
  Age: 52 Year
  Sex: Male

DRUGS (11)
  1. HUMIRA 40 MG/0.8 ML PEN [Suspect]
     Indication: RHEUMATOID ARTHRITIS
     Dates: start: 20120525
  2. PREDNISONE [Suspect]
     Indication: RHEUMATOID ARTHRITIS
  3. CLONAZEPAM [Concomitant]
     Indication: NERVOUSNESS
  4. FOLIC ACID [Concomitant]
     Indication: PRODUCT USED FOR UNKNOWN INDICATION
     Dosage: 1MG DAILY
  5. LOSARTIN [Concomitant]
     Indication: HYPERTENSION
     Dosage: 50MG DAILY
  6. POTASSIUM [Concomitant]
     Indication: HYPOKALAEMIA
     Dosage: 10MG DAILY
     Route: 048
  7. METFORMIN [Concomitant]
     Indication: DIABETES MELLITUS
     Dosage: 500MG DAILY
     Route: 048
  8. METHOTREXATE [Concomitant]
     Indication: RHEUMATOID ARTHRITIS
     Dosage: 8 TABLETS WEEKLY
  9. HYDROCODONE [Concomitant]
     Indication: PAIN
     Dosage: 5/500MG 1 TABLET AS NEEDED
  10. GABAPENTIN [Concomitant]
     Indication: DIABETES MELLITUS
     Dosage: 300MG DAILY AS NEEDED
     Route: 048
  11. IBUPROFEN [Concomitant]
     Indication: PRODUCT USED FOR UNKNOWN INDICATION
     Dosage: ONE DAILY

REACTIONS (4)
  - Joint swelling [Not Recovered/Not Resolved]
  - Contusion [Not Recovered/Not Resolved]
  - Contusion [Not Recovered/Not Resolved]
  - Contusion [Not Recovered/Not Resolved]
